FAERS Safety Report 7132437-4 (Version None)
Quarter: 2010Q4

REPORT INFORMATION
  Report Type: 
  Country: None (occurrence: None)
  Receive Date: 20101130
  Receipt Date: 20101130
  Transmission Date: 20110411
  Serious: Yes (Disabling)
  Sender: FDA-Public Use
  Company Number: None

PATIENT
  Age: 60 Year
  Sex: Male
  Weight: 102.0593 kg

DRUGS (1)
  1. VICTOZA [Suspect]
     Indication: TYPE 2 DIABETES MELLITUS
     Dosage: 1.8MG 1X DAILY SQ
     Route: 058
     Dates: start: 20100901, end: 20101118

REACTIONS (2)
  - EJECTION FRACTION DECREASED [None]
  - TACHYCARDIA [None]
